FAERS Safety Report 13533438 (Version 1)
Quarter: 2017Q2

REPORT INFORMATION
  Report Type: Spontaneous
  Country: US (occurrence: US)
  Receive Date: 20170510
  Receipt Date: 20170510
  Transmission Date: 20170830
  Serious: No
  Sender: FDA-Public Use
  Company Number: US-ACTELION-A-US2017-153594

PATIENT
  Age: 51 Year
  Sex: Female

DRUGS (1)
  1. VALCHLOR [Suspect]
     Active Substance: MECHLORETHAMINE
     Indication: MYCOSIS FUNGOIDES
     Dosage: UNK
     Route: 061
     Dates: start: 20170411

REACTIONS (3)
  - Application site pain [Not Recovered/Not Resolved]
  - Erythema [Recovering/Resolving]
  - Pruritus [Recovering/Resolving]
